FAERS Safety Report 8209620-X (Version None)
Quarter: 2012Q1

REPORT INFORMATION
  Report Type: 
  Country: None (occurrence: None)
  Receive Date: 20120314
  Receipt Date: 20120229
  Transmission Date: 20120608
  Serious: Yes (Death, Other)
  Sender: FDA-Public Use
  Company Number: HR-ELI_LILLY_AND_COMPANY-HR201201003257

PATIENT
  Sex: Female
  Weight: 100 kg

DRUGS (7)
  1. ZONADIN [Concomitant]
     Dosage: UNK, PRN
     Route: 048
  2. DIAZEPAM [Concomitant]
     Dosage: 5 MG, OTHER
  3. ZYPREXA [Suspect]
     Indication: DEPRESSION
     Dosage: 10 MG, QD
     Route: 048
     Dates: start: 20100101
  4. LANITOP [Concomitant]
  5. EQUANIL [Concomitant]
     Dosage: 200 MG, OTHER
  6. DEPAKENE [Concomitant]
     Dosage: 300 MG, UNK
  7. IRUZID                             /06400701/ [Concomitant]

REACTIONS (5)
  - HYPERTENSION [None]
  - OFF LABEL USE [None]
  - TACHYCARDIA [None]
  - PULMONARY OEDEMA [None]
  - GENERAL PHYSICAL HEALTH DETERIORATION [None]
